FAERS Safety Report 10691832 (Version 1)
Quarter: 2015Q1

REPORT INFORMATION
  Report Type: Spontaneous
  Country: US (occurrence: US)
  Receive Date: 20150105
  Receipt Date: 20150105
  Transmission Date: 20150720
  Serious: No
  Sender: FDA-Public Use
  Company Number: US-GLAXOSMITHKLINE-A1065151A

PATIENT

DRUGS (19)
  1. FOLIC ACID. [Concomitant]
     Active Substance: FOLIC ACID
  2. ALBUTEROL NEBULIZER [Concomitant]
     Active Substance: ALBUTEROL
  3. CEFEPIME [Concomitant]
     Active Substance: CEFEPIME\CEFEPIME HYDROCHLORIDE
  4. ENOXAPARIN [Concomitant]
     Active Substance: ENOXAPARIN
  5. IBUPROFEN. [Concomitant]
     Active Substance: IBUPROFEN
  6. KEPPRA [Concomitant]
     Active Substance: LEVETIRACETAM
  7. PEPCID [Concomitant]
     Active Substance: FAMOTIDINE
  8. LOVAZA [Suspect]
     Active Substance: OMEGA-3-ACID ETHYL ESTERS
     Indication: CRANIOCEREBRAL INJURY
     Route: 050
     Dates: start: 20140306
  9. DOCUSATE [Concomitant]
     Active Substance: DOCUSATE
  10. LACTOBACILLUS [Concomitant]
     Active Substance: LACTOBACILLUS ACIDOPHILUS
  11. METOCLOPRAMIDE. [Concomitant]
     Active Substance: METOCLOPRAMIDE
  12. METOPROLOL [Concomitant]
     Active Substance: METOPROLOL
  13. VANCOMYCIN [Concomitant]
     Active Substance: VANCOMYCIN
  14. AMANTADINE [Concomitant]
     Active Substance: AMANTADINE
  15. AMLODIPINE [Concomitant]
     Active Substance: AMLODIPINE BESYLATE
  16. IPRATROPIUM [Concomitant]
     Active Substance: IPRATROPIUM
  17. LABETALOL [Concomitant]
     Active Substance: LABETALOL\LABETALOL HYDROCHLORIDE
  18. MULTIVITAMIN [Concomitant]
     Active Substance: VITAMINS
  19. THIAMINE [Concomitant]
     Active Substance: THIAMINE

REACTIONS (3)
  - Drug administration error [Unknown]
  - Therapeutic response unexpected [Unknown]
  - Off label use [Unknown]

NARRATIVE: CASE EVENT DATE: 201403
